FAERS Safety Report 7759651-9 (Version None)
Quarter: 2011Q3

REPORT INFORMATION
  Report Type: 
  Country: None (occurrence: None)
  Receive Date: 20110919
  Receipt Date: 20110909
  Transmission Date: 20111222
  Serious: Yes (Hospitalization)
  Sender: FDA-Public Use
  Company Number: JP-EISAI INC-E2090-01347-SPO-JP

PATIENT
  Sex: Male

DRUGS (12)
  1. PHENYTOIN SODIUM CAP [Suspect]
     Dosage: UNKNOWN
     Route: 048
     Dates: start: 20110418, end: 20110429
  2. DEPAKENE [Suspect]
     Dosage: UNKNOWN
     Route: 048
     Dates: start: 20110509, end: 20110512
  3. DEPAKENE [Suspect]
     Indication: EPILEPSY
     Dosage: UNKNOWN
     Route: 048
     Dates: start: 20100908, end: 20101006
  4. ZONISAMIDE [Suspect]
     Indication: EPILEPSY
     Dosage: 200 MG
     Route: 048
     Dates: start: 20100908, end: 20101006
  5. DEPAKENE [Suspect]
     Dosage: UNKNOWN
     Route: 048
     Dates: start: 20110418, end: 20110429
  6. TEGRETOL [Concomitant]
     Indication: CONVULSION
     Dosage: UNKNOWN
     Route: 048
     Dates: start: 20100908, end: 20100901
  7. DIAZEPAM [Concomitant]
     Indication: STATUS EPILEPTICUS
     Dosage: UNKNOWN INJECTION
     Dates: start: 20100908
  8. ZONISAMIDE [Suspect]
     Dosage: UNKNOWN
     Route: 048
     Dates: start: 20110509, end: 20110512
  9. ZONISAMIDE [Suspect]
     Dosage: UNKNOWN
     Route: 048
     Dates: start: 20110418, end: 20110429
  10. PHENYTOIN SODIUM CAP [Suspect]
     Indication: EPILEPSY
     Route: 048
     Dates: start: 20100908, end: 20101006
  11. PHENYTOIN SODIUM CAP [Suspect]
     Dosage: UNKNOWN
     Route: 048
     Dates: start: 20110509, end: 20110512
  12. CLONAZEPAM [Concomitant]
     Indication: EPILEPSY
     Dosage: UNKNOWN
     Dates: start: 20101006, end: 20101008

REACTIONS (1)
  - DRUG RASH WITH EOSINOPHILIA AND SYSTEMIC SYMPTOMS [None]
